FAERS Safety Report 19123005 (Version 1)
Quarter: 2021Q2

REPORT INFORMATION
  Report Type: Spontaneous
  Country: TR (occurrence: TR)
  Receive Date: 20210412
  Receipt Date: 20210412
  Transmission Date: 20210717
  Serious: Yes (Other)
  Sender: FDA-Public Use
  Company Number: TR-009507513-2104TUR001184

PATIENT
  Sex: Female

DRUGS (7)
  1. DEKORT (DEXAMETHASONE ) [Concomitant]
  2. BENVIDA [Concomitant]
     Active Substance: LACOSAMIDE
  3. KEPPRA [Concomitant]
     Active Substance: LEVETIRACETAM
  4. PANDEV [Concomitant]
     Active Substance: PANTOPRAZOLE SODIUM
  5. TEMOZOLOMIDE. [Suspect]
     Active Substance: TEMOZOLOMIDE
     Indication: GLIOBLASTOMA
     Dosage: 130 MG(100 MG +20 MG +2/5 MG CAPSULES) AT NIGHTIME
     Route: 048
     Dates: start: 20210322
  6. BELOC (METOPROLOL SUCCINATE) [Concomitant]
  7. GERALGINE [Concomitant]

REACTIONS (7)
  - Astrocytoma surgery [Unknown]
  - Rash [Not Recovered/Not Resolved]
  - Product physical issue [Unknown]
  - Dysphagia [Not Recovered/Not Resolved]
  - CSF shunt operation [Unknown]
  - Product use complaint [Unknown]
  - Product dose omission issue [Unknown]

NARRATIVE: CASE EVENT DATE: 2021
